FAERS Safety Report 19965228 (Version 3)
Quarter: 2022Q2

REPORT INFORMATION
  Report Type: Spontaneous
  Country: US (occurrence: US)
  Receive Date: 20211018
  Receipt Date: 20220519
  Transmission Date: 20220721
  Serious: No
  Sender: FDA-Public Use
  Company Number: US-PFIZER INC-2021423171

PATIENT
  Age: 76 Year
  Sex: Female

DRUGS (2)
  1. XELJANZ XR [Suspect]
     Active Substance: TOFACITINIB CITRATE
     Dosage: 11 MG, 2X/DAY (MORNING AND EVENING)
  2. XELJANZ XR [Suspect]
     Active Substance: TOFACITINIB CITRATE
     Dosage: 11 MG, DAILY (TAKE 11 MG BY MOUTH DAILY)
     Route: 048

REACTIONS (6)
  - Intentional product misuse [Unknown]
  - Off label use [Unknown]
  - Malaise [Unknown]
  - Dizziness [Unknown]
  - Irritability [Unknown]
  - Hypertension [Unknown]
